FAERS Safety Report 4772150-1 (Version None)
Quarter: 2005Q3

REPORT INFORMATION
  Report Type: 
  Country: None (occurrence: None)
  Receive Date: 20050919
  Receipt Date: 20050907
  Transmission Date: 20060218
  Serious: Yes (Death)
  Sender: FDA-Public Use
  Company Number: US-JNJFOC-20050902417

PATIENT
  Age: 31 Year
  Sex: Female

DRUGS (8)
  1. FENTANYL [Suspect]
     Indication: DRUG USE FOR UNKNOWN INDICATION
     Route: 062
  2. ETHANOL [Suspect]
     Indication: INTENTIONAL MISUSE
  3. PAROXETINE [Concomitant]
     Indication: DRUG USE FOR UNKNOWN INDICATION
  4. TRAMADOL [Concomitant]
     Indication: DRUG USE FOR UNKNOWN INDICATION
  5. PROMETHAZINE [Concomitant]
     Indication: DRUG USE FOR UNKNOWN INDICATION
  6. ALPRAZOLAM [Concomitant]
     Indication: DRUG USE FOR UNKNOWN INDICATION
  7. ACETAMINOPHEN/OXYCODONE [Concomitant]
  8. ACETAMINOPHEN/OXYCODONE [Concomitant]
     Indication: DRUG USE FOR UNKNOWN INDICATION

REACTIONS (2)
  - CARDIO-RESPIRATORY ARREST [None]
  - SEPSIS [None]
